FAERS Safety Report 20699170 (Version 1)
Quarter: 2022Q2

REPORT INFORMATION
  Report Type: Spontaneous
  Country: US (occurrence: US)
  Receive Date: 20220412
  Receipt Date: 20220412
  Transmission Date: 20220721
  Serious: Yes (Other)
  Sender: FDA-Public Use
  Company Number: US-LUPIN PHARMACEUTICALS INC.-2022-05127

PATIENT
  Age: 44 Year
  Sex: Male

DRUGS (15)
  1. QUETIAPINE [Interacting]
     Active Substance: QUETIAPINE
     Indication: Affective disorder
     Dosage: UNK UNK, QD 1-3 TABLETS OF QUETIAPINE 100 MG EVERY EVENING,
     Route: 065
  2. DOXAZOSIN [Interacting]
     Active Substance: DOXAZOSIN MESYLATE
     Indication: Product used for unknown indication
     Dosage: 8 MG, QD (AT BEDTIME)
     Route: 065
  3. BOCEPREVIR [Interacting]
     Active Substance: BOCEPREVIR
     Indication: Product used for unknown indication
     Dosage: 800 MG, TID
     Route: 065
  4. TAMSULOSIN [Interacting]
     Active Substance: TAMSULOSIN
     Indication: Product used for unknown indication
     Dosage: 0.4 MG, QD
     Route: 065
  5. PEGYLATED INTERFERON ALPHA NOS [Concomitant]
     Active Substance: PEGINTERFERON ALFA-2A OR PEGINTERFERON ALFA-2B
     Indication: Product used for unknown indication
     Dosage: 120 MICROGRAM (EVERY 7 DAYS,)
     Route: 058
  6. RIBAVIRIN [Concomitant]
     Active Substance: RIBAVIRIN
     Indication: Product used for unknown indication
     Dosage: UNK (400 MG EVERY MORNING AND 600 MG EVERY EVENING)
     Route: 065
  7. TESTOSTERONE CYPIONATE [Concomitant]
     Active Substance: TESTOSTERONE CYPIONATE
     Indication: Hypogonadism
     Dosage: 200 MG, QD (EVERY 14 DAYS)
     Route: 030
  8. LITHIUM [Concomitant]
     Active Substance: LITHIUM
     Indication: Product used for unknown indication
     Dosage: 1200 MG, QD AT BEDTIME (0.8 MMOL/L; 3 WEEKS POSTINCIDENT)
     Route: 065
  9. LOSARTAN [Concomitant]
     Active Substance: LOSARTAN
     Indication: Product used for unknown indication
     Dosage: 50 MG, QD
     Route: 065
  10. NAPROXEN [Concomitant]
     Active Substance: NAPROXEN
     Indication: Pain
     Dosage: 500 MG, BID
     Route: 065
  11. ACETAMINOPHEN\OXYCODONE HYDROCHLORIDE [Concomitant]
     Active Substance: ACETAMINOPHEN\OXYCODONE HYDROCHLORIDE
     Indication: Pain
     Dosage: UNK, QID  (5-325 MG EVERY 6 HOURS AS NEEDED)
     Route: 065
  12. LOPERAMIDE [Concomitant]
     Active Substance: LOPERAMIDE
     Indication: Diarrhoea
     Dosage: 2 MG, PRN ( AS NEEDED)
     Route: 065
  13. CODEINE\GUAIFENESIN [Concomitant]
     Active Substance: CODEINE\GUAIFENESIN
     Indication: Cough
     Dosage: UNK (15 MG/5 ML-10 ML) 4 TIMES DAILY AS NEEDED
     Route: 065
  14. CYCLOBENZAPRINE [Concomitant]
     Active Substance: CYCLOBENZAPRINE
     Indication: Muscle spasms
     Dosage: 10 MG, TID (AS NEEDED)
     Route: 065
  15. EFAVIRENZ + EMTRICITABINA + TENOFOVIR DISOPROXIL FUMARATO [Concomitant]
     Indication: Product used for unknown indication
     Dosage: UNK, QD 600/200/300 MG
     Route: 048

REACTIONS (3)
  - Drug interaction [Unknown]
  - Adrenergic syndrome [Unknown]
  - Priapism [Recovering/Resolving]
